FAERS Safety Report 4552554-2 (Version None)
Quarter: 2005Q1

REPORT INFORMATION
  Report Type: 
  Country: None (occurrence: None)
  Receive Date: 20050114
  Receipt Date: 20040824
  Transmission Date: 20050727
  Serious: No
  Sender: FDA-Public Use
  Company Number: US-GLAXOSMITHKLINE-A0523213A

PATIENT
  Sex: Female

DRUGS (3)
  1. IMITREX [Suspect]
     Indication: DRUG USE FOR UNKNOWN INDICATION
     Route: 065
     Dates: start: 20030101
  2. 5-HTP [Suspect]
     Indication: DRUG USE FOR UNKNOWN INDICATION
     Route: 065
  3. L-TYROSINE [Suspect]
     Indication: DRUG USE FOR UNKNOWN INDICATION
     Route: 065

REACTIONS (3)
  - DRUG INTERACTION [None]
  - FEELING ABNORMAL [None]
  - THROAT TIGHTNESS [None]
